FAERS Safety Report 25965947 (Version 1)
Quarter: 2025Q4

REPORT INFORMATION
  Report Type: Spontaneous
  Country: US (occurrence: US)
  Receive Date: 20251027
  Receipt Date: 20251027
  Transmission Date: 20260118
  Serious: Yes (Other)
  Sender: ABBVIE
  Company Number: US-ALLERGAN-1925078US

PATIENT
  Age: 64 Year
  Sex: Female

DRUGS (11)
  1. BOTOX [Suspect]
     Active Substance: ONABOTULINUMTOXINA
     Indication: Salivary hypersecretion
     Dosage: TIME INTERVAL: AS NECESSARY
     Route: 030
     Dates: start: 20180226, end: 20180226
  2. BOTOX [Suspect]
     Active Substance: ONABOTULINUMTOXINA
     Indication: Salivary hypersecretion
     Dosage: TIME INTERVAL: AS NECESSARY: SINGLE
     Route: 030
  3. BOTOX [Suspect]
     Active Substance: ONABOTULINUMTOXINA
     Indication: Salivary hypersecretion
     Dosage: TIME INTERVAL: AS NECESSARY: SINGLE
     Route: 030
  4. BOTOX [Suspect]
     Active Substance: ONABOTULINUMTOXINA
     Indication: Salivary hypersecretion
     Dosage: TIME INTERVAL: AS NECESSARY: SINGLE
     Route: 030
  5. VITAMINS [Concomitant]
     Active Substance: VITAMINS
     Indication: Vitamin supplementation
     Route: 048
  6. CARBAMAZEPINE [Concomitant]
     Active Substance: CARBAMAZEPINE
     Indication: Seizure
     Route: 065
  7. DOXYCYCLINE [Concomitant]
     Active Substance: DOXYCYCLINE
     Indication: Product used for unknown indication
  8. VITAMIN D [Concomitant]
     Active Substance: VITAMIN D NOS
     Indication: Supplementation therapy
     Route: 048
  9. MIRALAX [Concomitant]
     Active Substance: POLYETHYLENE GLYCOL 3350
     Indication: Constipation
  10. CARVEDILOL [Concomitant]
     Active Substance: CARVEDILOL
     Indication: Product used for unknown indication
     Route: 048
  11. OYSTER [Concomitant]
     Active Substance: OYSTER, UNSPECIFIED
     Indication: Product used for unknown indication
     Route: 048

REACTIONS (28)
  - Loss of consciousness [Recovered/Resolved]
  - Seizure [Recovered/Resolved]
  - Tremor [Not Recovered/Not Resolved]
  - Feeling abnormal [Not Recovered/Not Resolved]
  - Amnesia [Unknown]
  - Mental impairment [Unknown]
  - Irritability [Unknown]
  - Somnolence [Not Recovered/Not Resolved]
  - Eye disorder [Not Recovered/Not Resolved]
  - Coating in mouth [Not Recovered/Not Resolved]
  - Rhinorrhoea [Not Recovered/Not Resolved]
  - Sneezing [Not Recovered/Not Resolved]
  - Pain [Not Recovered/Not Resolved]
  - Confusional state [Not Recovered/Not Resolved]
  - Thinking abnormal [Not Recovered/Not Resolved]
  - Initial insomnia [Not Recovered/Not Resolved]
  - Tooth disorder [Not Recovered/Not Resolved]
  - Off label use [Unknown]
  - Drug ineffective for unapproved indication [Unknown]
  - Visual impairment [Not Recovered/Not Resolved]
  - Eye irritation [Not Recovered/Not Resolved]
  - Neck pain [Not Recovered/Not Resolved]
  - Headache [Not Recovered/Not Resolved]
  - Dysphagia [Not Recovered/Not Resolved]
  - Malaise [Not Recovered/Not Resolved]
  - Dry mouth [Not Recovered/Not Resolved]
  - Dizziness [Not Recovered/Not Resolved]
  - Cognitive disorder [Not Recovered/Not Resolved]

NARRATIVE: CASE EVENT DATE: 20181027
